FAERS Safety Report 8726978 (Version 2)
Quarter: 2015Q2

REPORT INFORMATION
  Report Type: Report from Study
  Country: US (occurrence: US)
  Receive Date: 20120816
  Receipt Date: 20150626
  Transmission Date: 20150821
  Serious: Yes (Hospitalization)
  Sender: FDA-Public Use
  Company Number: US-ROCHE-1100852

PATIENT
  Age: 51 Year
  Sex: Male

DRUGS (7)
  1. MORPHINE SULFATE. [Concomitant]
     Active Substance: MORPHINE SULFATE
     Route: 042
  2. ACTIVASE [Suspect]
     Active Substance: ALTEPLASE
     Indication: ACUTE MYOCARDIAL INFARCTION
     Route: 065
     Dates: start: 19940702
  3. RESTORIL [Concomitant]
     Active Substance: TEMAZEPAM
     Route: 048
  4. GLUCOTROL [Concomitant]
     Active Substance: GLIPIZIDE
     Route: 048
  5. ZANTAC [Concomitant]
     Active Substance: RANITIDINE HYDROCHLORIDE
     Route: 048
  6. TRIDIL [Concomitant]
     Active Substance: NITROGLYCERIN
     Route: 042
  7. PROCARDIA (UNITED STATES) [Concomitant]
     Route: 048

REACTIONS (4)
  - Aggression [Unknown]
  - Mental status changes [Unknown]
  - Pneumonia [Recovered/Resolved]
  - White blood cell count increased [Unknown]
